FAERS Safety Report 10087913 (Version 2)
Quarter: 2014Q2

REPORT INFORMATION
  Report Type: Spontaneous
  Country: US (occurrence: US)
  Receive Date: 20140418
  Receipt Date: 20140418
  Transmission Date: 20141212
  Serious: Yes (Death)
  Sender: FDA-Public Use
  Company Number: US-NAPPMUNDI-USA-2014-0111490

PATIENT
  Age: 14 Year
  Sex: Female
  Weight: 58.96 kg

DRUGS (4)
  1. OXYCODONE HYDROCHLORIDE (SIMILAR TO NDA 22-272) [Suspect]
     Indication: PRODUCT USED FOR UNKNOWN INDICATION
     Dosage: UNK
     Route: 065
  2. CANNABIS SATIVA [Concomitant]
     Indication: PRODUCT USED FOR UNKNOWN INDICATION
  3. NICOTINE [Concomitant]
     Indication: PRODUCT USED FOR UNKNOWN INDICATION
  4. CAFFEINE [Concomitant]
     Indication: PRODUCT USED FOR UNKNOWN INDICATION

REACTIONS (1)
  - Overdose [Fatal]
